FAERS Safety Report 10557487 (Version 5)
Quarter: 2014Q4

REPORT INFORMATION
  Report Type: Spontaneous
  Country: US (occurrence: US)
  Receive Date: 20141031
  Receipt Date: 20141201
  Transmission Date: 20150529
  Serious: Yes (Hospitalization)
  Sender: FDA-Public Use
  Company Number: US-ACTELION-A-US2014-106819

PATIENT
  Age: 33 Year
  Sex: Female

DRUGS (11)
  1. VELETRI [Suspect]
     Active Substance: EPOPROSTENOL
     Indication: PULMONARY ARTERIAL HYPERTENSION
     Dosage: 24 NG/KG, PER MIN
     Route: 042
     Dates: start: 20140903
  2. VELETRI [Suspect]
     Active Substance: EPOPROSTENOL
     Dosage: 40 NG/KG, PER MIN
     Route: 042
  3. IBUPROFEN. [Concomitant]
     Active Substance: IBUPROFEN
  4. CEFTRIAXONE. [Concomitant]
     Active Substance: CEFTRIAXONE
  5. ZOFRAN [Concomitant]
     Active Substance: ONDANSETRON HYDROCHLORIDE
  6. BENADRYL [Concomitant]
     Active Substance: DIPHENHYDRAMINE HYDROCHLORIDE
  7. REVATIO [Concomitant]
     Active Substance: SILDENAFIL CITRATE
  8. ATIVAN [Concomitant]
     Active Substance: LORAZEPAM
  9. REMODULIN [Concomitant]
     Active Substance: TREPROSTINIL
  10. OPSUMIT [Suspect]
     Active Substance: MACITENTAN
     Indication: PULMONARY ARTERIAL HYPERTENSION
     Dosage: 10 MG, QD
     Route: 048
     Dates: start: 20140930
  11. CLARITIN [Concomitant]
     Active Substance: LORATADINE

REACTIONS (12)
  - Dermatitis contact [Recovering/Resolving]
  - Application site reaction [Recovering/Resolving]
  - Skin disorder [Recovering/Resolving]
  - Skin reaction [Recovering/Resolving]
  - Pruritus [Recovering/Resolving]
  - Pain in jaw [Unknown]
  - Erythema [Recovering/Resolving]
  - Diarrhoea [Recovering/Resolving]
  - Abdominal pain upper [Unknown]
  - Trichomoniasis [Unknown]
  - Dry skin [Recovering/Resolving]
  - Rash macular [Unknown]
